FAERS Safety Report 8437172-8 (Version None)
Quarter: 2012Q2

REPORT INFORMATION
  Report Type: 
  Country: None (occurrence: None)
  Receive Date: 20120614
  Receipt Date: 20120301
  Transmission Date: 20120825
  Serious: No
  Sender: FDA-Public Use
  Company Number: US-AMGEN-USASP2011059782

PATIENT
  Age: 64 Year
  Sex: Female

DRUGS (11)
  1. NEXIUM [Concomitant]
     Dosage: UNK
  2. POTASSIUM ACETATE [Concomitant]
     Dosage: UNK
  3. PROLIA [Suspect]
     Indication: OSTEOPOROSIS POSTMENOPAUSAL
     Dosage: 60 MG, UNK
     Dates: start: 20111014, end: 20111014
  4. VYTORIN [Concomitant]
  5. VITAMIN TAB [Concomitant]
  6. CALCIUM [Concomitant]
     Dosage: UNK
  7. LEXAPRO [Concomitant]
     Dosage: UNK
  8. DETROL LA [Concomitant]
  9. FUROSEMIDE [Concomitant]
     Dosage: UNK
     Dates: start: 20111104
  10. CALMATE [Concomitant]
  11. MULTI-VITAMINS [Concomitant]
     Dosage: UNK

REACTIONS (2)
  - BACK PAIN [None]
  - OEDEMA PERIPHERAL [None]
